FAERS Safety Report 19829820 (Version 2)
Quarter: 2021Q4

REPORT INFORMATION
  Report Type: Spontaneous
  Country: US (occurrence: US)
  Receive Date: 20210914
  Receipt Date: 20211213
  Transmission Date: 20220303
  Serious: No
  Sender: FDA-Public Use
  Company Number: US-BRISTOL-MYERS SQUIBB COMPANY-BMS-2021-090219

PATIENT
  Age: 52 Year
  Sex: Male

DRUGS (2)
  1. OPDIVO [Suspect]
     Active Substance: NIVOLUMAB
     Indication: Renal cell carcinoma
     Dosage: UNK UNK, QMO
     Route: 065
  2. CABOMETYX [Suspect]
     Active Substance: CABOZANTINIB S-MALATE
     Indication: Renal cell carcinoma
     Dosage: 40 MILLIGRAM, QD
     Route: 065
     Dates: start: 20210528

REACTIONS (8)
  - Tongue discomfort [Unknown]
  - Cystitis [Recovering/Resolving]
  - Pain [Unknown]
  - Stomatitis [Recovering/Resolving]
  - Taste disorder [Not Recovered/Not Resolved]
  - Pain in extremity [Not Recovered/Not Resolved]
  - Fatigue [Recovering/Resolving]
  - Palmar-plantar erythrodysaesthesia syndrome [Unknown]
